FAERS Safety Report 15658279 (Version 1)
Quarter: 2018Q4

REPORT INFORMATION
  Report Type: Report from Study
  Country: CA (occurrence: CA)
  Receive Date: 20181126
  Receipt Date: 20181126
  Transmission Date: 20190205
  Serious: Yes (Other)
  Sender: FDA-Public Use
  Company Number: CA-EISAI MEDICAL RESEARCH-EC-2018-039919

PATIENT
  Age: 76 Year
  Sex: Female

DRUGS (9)
  1. VITAMIN D [Concomitant]
     Active Substance: CHOLECALCIFEROL
  2. METOPROLOL. [Concomitant]
     Active Substance: METOPROLOL
  3. TRIAZIDE [Concomitant]
  4. LENVIMA [Suspect]
     Active Substance: LENVATINIB
     Indication: THYROID CANCER
     Route: 048
     Dates: start: 20180327, end: 20180516
  5. SIVASTAN [Concomitant]
  6. LENVIMA [Suspect]
     Active Substance: LENVATINIB
     Route: 048
     Dates: start: 20180531, end: 2018
  7. SYNTHROID [Concomitant]
     Active Substance: LEVOTHYROXINE SODIUM
  8. VITAMIN K [Concomitant]
     Active Substance: PHYTONADIONE
  9. AMLODIPINE [Concomitant]
     Active Substance: AMLODIPINE BESYLATE

REACTIONS (13)
  - Constipation [Unknown]
  - Blood pressure increased [Recovering/Resolving]
  - Renal failure [Unknown]
  - Joint swelling [Unknown]
  - Protein urine present [Unknown]
  - Fatigue [Unknown]
  - Skin laceration [Unknown]
  - Fall [Unknown]
  - Pruritus [Unknown]
  - Emotional disorder [Unknown]
  - Musculoskeletal pain [Unknown]
  - Osteoarthritis [Unknown]
  - Mobility decreased [Unknown]

NARRATIVE: CASE EVENT DATE: 2018
